FAERS Safety Report 5630052-2 (Version None)
Quarter: 2008Q1

REPORT INFORMATION
  Report Type: 
  Country: None (occurrence: None)
  Receive Date: 20080218
  Receipt Date: 20080211
  Transmission Date: 20080703
  Serious: Yes (Hospitalization)
  Sender: FDA-Public Use
  Company Number: PHRM2008FR00798

PATIENT
  Age: 86 Year
  Sex: Male

DRUGS (5)
  1. AMIODARONE HCL [Suspect]
     Indication: ARRHYTHMIA
     Route: 048
     Dates: start: 20070305, end: 20070315
  2. ISOPTIN [Suspect]
     Indication: ARRHYTHMIA
     Route: 048
     Dates: start: 20070301, end: 20070403
  3. INDAPAMIDE [Suspect]
     Indication: HYPERTENSION
     Dosage: 1.5 MG, QD
     Route: 048
     Dates: end: 20070403
  4. TAREG [Suspect]
     Indication: HYPERTENSION
     Route: 048
     Dates: end: 20070403
  5. CELECTOL [Concomitant]

REACTIONS (5)
  - BRADYCARDIA [None]
  - CARDIAC PACEMAKER INSERTION [None]
  - CARDIOGENIC SHOCK [None]
  - FALL [None]
  - HYPOTENSION [None]
